FAERS Safety Report 25483908 (Version 3)
Quarter: 2025Q4

REPORT INFORMATION
  Report Type: Report from Study
  Country: CA (occurrence: CA)
  Receive Date: 20250626
  Receipt Date: 20251223
  Transmission Date: 20260117
  Serious: Yes (Hospitalization, Other)
  Sender: PFIZER
  Company Number: CA-PFIZER INC-202500128270

PATIENT
  Age: 89 Year
  Sex: Female

DRUGS (2)
  1. VYNDAMAX [Suspect]
     Active Substance: TAFAMIDIS
     Indication: Cardiac amyloidosis
     Dosage: 61 MG, 1X/DAY
     Route: 048
     Dates: start: 20231229, end: 2025
  2. LASIX [Concomitant]
     Active Substance: FUROSEMIDE
     Dosage: 60 MG, 1X/DAY

REACTIONS (5)
  - Cardiac failure [Unknown]
  - Cardiac pacemaker insertion [Unknown]
  - Cardiac sarcoidosis [Unknown]
  - Atrial fibrillation [Unknown]
  - Atrial flutter [Unknown]

NARRATIVE: CASE EVENT DATE: 20250101
